FAERS Safety Report 9706918 (Version 2)
Quarter: 2014Q1

REPORT INFORMATION
  Report Type: Spontaneous
  Country: US (occurrence: US)
  Receive Date: 20131125
  Receipt Date: 20140114
  Transmission Date: 20141002
  Serious: No
  Sender: FDA-Public Use
  Company Number: US-PFIZER INC-2013335637

PATIENT
  Sex: Female

DRUGS (1)
  1. LYRICA [Suspect]
     Indication: MIGRAINE PROPHYLAXIS
     Dosage: UNK
     Dates: end: 201312

REACTIONS (4)
  - Off label use [Unknown]
  - Drug ineffective for unapproved indication [Unknown]
  - Influenza [Unknown]
  - Malaise [Unknown]
